FAERS Safety Report 9236737 (Version 3)
Quarter: 2013Q2

REPORT INFORMATION
  Report Type: Report from Study
  Country: US (occurrence: US)
  Receive Date: 20130417
  Receipt Date: 20130502
  Transmission Date: 20140414
  Serious: Yes (Hospitalization)
  Sender: FDA-Public Use
  Company Number: US-ROCHE-1211371

PATIENT
  Age: 75 Year
  Sex: Male
  Weight: 70.37 kg

DRUGS (8)
  1. XELODA [Suspect]
     Indication: COLORECTAL CANCER METASTATIC
     Route: 048
     Dates: start: 20130304, end: 20130408
  2. XELODA [Suspect]
     Route: 048
     Dates: start: 20130304, end: 20130419
  3. AVASTIN [Suspect]
     Indication: COLORECTAL CANCER METASTATIC
     Route: 042
     Dates: start: 20130304
  4. WARFARIN [Concomitant]
     Dosage: 4 MG 4 DAYS A WEEK/6 MG 3 DAYS A WEEK
     Route: 048
  5. IRINOTECAN [Concomitant]
     Indication: COLORECTAL CANCER METASTATIC
     Route: 042
     Dates: start: 20130304
  6. COUMARIN [Concomitant]
     Route: 048
  7. IMODIUM [Concomitant]
     Route: 048
  8. COUMADIN [Concomitant]

REACTIONS (12)
  - International normalised ratio abnormal [Recovering/Resolving]
  - Prothrombin time abnormal [Recovering/Resolving]
  - Epistaxis [Recovered/Resolved]
  - Haematochezia [Unknown]
  - Gastrointestinal haemorrhage [Recovered/Resolved]
  - Prothrombin time prolonged [Not Recovered/Not Resolved]
  - Dysgeusia [Not Recovered/Not Resolved]
  - Diarrhoea [Not Recovered/Not Resolved]
  - Decreased appetite [Not Recovered/Not Resolved]
  - Flatulence [Not Recovered/Not Resolved]
  - Fatigue [Not Recovered/Not Resolved]
  - Stomatitis [Unknown]
